FAERS Safety Report 14782841 (Version 4)
Quarter: 2020Q2

REPORT INFORMATION
  Report Type: Spontaneous
  Country: US (occurrence: US)
  Receive Date: 20180420
  Receipt Date: 20200629
  Transmission Date: 20200713
  Serious: No
  Sender: FDA-Public Use
  Company Number: US-PFIZER INC-2017415723

PATIENT
  Age: 34 Year
  Sex: Female
  Weight: 63 kg

DRUGS (2)
  1. XELJANZ [Suspect]
     Active Substance: TOFACITINIB CITRATE
     Indication: ALOPECIA AREATA
     Dosage: 5 MG, 2X/DAY
     Route: 048
     Dates: end: 20200525
  2. KENALOG [Concomitant]
     Active Substance: TRIAMCINOLONE ACETONIDE
     Dosage: UNK

REACTIONS (8)
  - Disease recurrence [Unknown]
  - Product use in unapproved indication [Unknown]
  - Drug intolerance [Unknown]
  - Off label use [Unknown]
  - Hypoaesthesia [Unknown]
  - Abdominal discomfort [Unknown]
  - Intentional product misuse [Unknown]
  - Herpes zoster [Unknown]
